FAERS Safety Report 9547657 (Version 5)
Quarter: 2013Q4

REPORT INFORMATION
  Report Type: Spontaneous
  Country: DE (occurrence: None)
  Receive Date: 20130920
  Receipt Date: 20131223
  Transmission Date: 20140711
  Serious: Yes (Hospitalization)
  Sender: FDA-Public Use
  Company Number: SYM-2013-10816

PATIENT
  Age: 49 Year
  Sex: Male

DRUGS (13)
  1. 5 FU [Suspect]
     Indication: COLORECTAL CANCER METASTATIC
     Route: 040
     Dates: start: 20130416, end: 20130416
  2. AFLIBERCEPT [Suspect]
     Indication: COLORECTAL CANCER METASTATIC
     Dosage: 400 MG, EVERY OTHER WEEK, INTRAVENOUS (NOT OTHERWISE SPECIFIED)
     Route: 042
     Dates: start: 20130416, end: 20130416
  3. IRINOTECAN [Suspect]
     Indication: COLORECTAL CANCER METASTATIC
     Dosage: 360 MG, EVERY OTHER WEEK, INTRAVENOUS (NOT OTHERWISE SPECIFIED)
     Route: 042
     Dates: start: 20130416, end: 20130416
  4. LEUCOVORIN (FOLINIC ACID) (SOLUTION FOR INFUSION) (FOLINIC ACID) [Suspect]
     Indication: COLORECTAL CANCER METASTATIC
     Dosage: 800 MG, EVERY OTHER WEEK, INTRAVENOUS (NOT OTHERWISE SPECIFIED)
     Route: 042
     Dates: start: 20130416, end: 20130416
  5. HEPARIN [Concomitant]
  6. MIRTAZAPINE [Concomitant]
  7. PANTOZOL (PANTOPRAZOLE SODIUM SESQUIHYDRATE) [Concomitant]
  8. LASIX (FUROSEMIDE) [Concomitant]
  9. ACE INHIBITOR NOS (ACE INHIBITORS) [Concomitant]
  10. ALLOPURINOL [Concomitant]
  11. ANTIBIOTICS [Concomitant]
  12. AMLODIPINE [Concomitant]
  13. MOVICOL (MOVICOL /01749801/) (SODIUM BICARBONATE, POTASSIUM CHLORIDE, SODIUM CHLORIDE, MACROGOL 3350) [Concomitant]

REACTIONS (5)
  - Fatigue [None]
  - Dyspnoea exertional [None]
  - Anaemia [None]
  - Pyrexia [None]
  - Pyrexia [None]
